FAERS Safety Report 22760228 (Version 2)
Quarter: 2023Q4

REPORT INFORMATION
  Report Type: Report from Study
  Country: US (occurrence: US)
  Receive Date: 20230728
  Receipt Date: 20231023
  Transmission Date: 20240110
  Serious: Yes (Other)
  Sender: FDA-Public Use
  Company Number: US-ABBVIE-5344850

PATIENT
  Sex: Male

DRUGS (2)
  1. HUMIRA [Suspect]
     Active Substance: ADALIMUMAB
     Indication: Product used for unknown indication
     Dosage: FORM STRENGTH 40 MILLIGRAM
     Route: 058
  2. HUMIRA [Suspect]
     Active Substance: ADALIMUMAB
     Route: 058
     Dates: start: 20210828

REACTIONS (6)
  - Hernia [Unknown]
  - Meniscus injury [Unknown]
  - Arthralgia [Not Recovered/Not Resolved]
  - Mobility decreased [Recovering/Resolving]
  - Joint swelling [Recovering/Resolving]
  - Bone disorder [Unknown]

NARRATIVE: CASE EVENT DATE: 20230101
